FAERS Safety Report 16278360 (Version 4)
Quarter: 2020Q1

REPORT INFORMATION
  Report Type: Spontaneous
  Country: US (occurrence: US)
  Receive Date: 20190506
  Receipt Date: 20200107
  Transmission Date: 20200409
  Serious: Yes (Other)
  Sender: FDA-Public Use
  Company Number: US-ASTRAZENECA-2018SF65328

PATIENT
  Age: 29384 Day
  Sex: Female
  Weight: 70.3 kg

DRUGS (29)
  1. MELOXICAM. [Concomitant]
     Active Substance: MELOXICAM
  2. LEVOTHYROXINE. [Concomitant]
     Active Substance: LEVOTHYROXINE
     Dates: start: 2005
  3. LOVASTATIN. [Concomitant]
     Active Substance: LOVASTATIN
     Indication: BLOOD CHOLESTEROL DECREASED
     Dates: start: 2005
  4. PRILOSEC OTC [Suspect]
     Active Substance: OMEPRAZOLE MAGNESIUM
     Indication: GASTROOESOPHAGEAL REFLUX DISEASE
     Route: 048
     Dates: start: 2012, end: 2016
  5. ASPIRIN. [Concomitant]
     Active Substance: ASPIRIN
     Dates: start: 2015
  6. HYDRALAZINE [Concomitant]
     Active Substance: HYDRALAZINE HYDROCHLORIDE
     Indication: HYPERTENSION
     Dates: start: 201811
  7. AMLODIPINE [Concomitant]
     Active Substance: AMLODIPINE BESYLATE
     Indication: HYPERTENSION
     Dates: start: 2005, end: 2018
  8. MAGNESIUM [Concomitant]
     Active Substance: MAGNESIUM
  9. NEXIUM 24HR [Suspect]
     Active Substance: ESOMEPRAZOLE MAGNESIUM
     Indication: GASTROOESOPHAGEAL REFLUX DISEASE
     Route: 048
     Dates: end: 201704
  10. NEXIUM [Suspect]
     Active Substance: ESOMEPRAZOLE MAGNESIUM
     Route: 048
  11. CELEBREX [Concomitant]
     Active Substance: CELECOXIB
  12. DICLOFENAC [Concomitant]
     Active Substance: DICLOFENAC
  13. IBUPROFEN. [Concomitant]
     Active Substance: IBUPROFEN
  14. CALCIUM [Concomitant]
     Active Substance: CALCIUM
  15. FISH OIL [Concomitant]
     Active Substance: FISH OIL
  16. ALENDRONATE [Concomitant]
     Active Substance: ALENDRONATE SODIUM
  17. CENTRUM [Concomitant]
     Active Substance: VITAMINS
  18. PRILOSEC OTC [Suspect]
     Active Substance: OMEPRAZOLE MAGNESIUM
     Indication: GASTROOESOPHAGEAL REFLUX DISEASE
     Route: 048
     Dates: start: 2012, end: 201603
  19. DEXILANT [Suspect]
     Active Substance: DEXLANSOPRAZOLE
     Route: 065
  20. EZETIMIBE. [Concomitant]
     Active Substance: EZETIMIBE
  21. INDOMETHACIN. [Concomitant]
     Active Substance: INDOMETHACIN
  22. POTASSIUM [Concomitant]
     Active Substance: POTASSIUM
  23. ALEVE [Concomitant]
     Active Substance: NAPROXEN SODIUM
  24. ZANTAC [Concomitant]
     Active Substance: RANITIDINE HYDROCHLORIDE
     Dosage: APPROX SIX MONTH
     Dates: start: 1993
  25. VITAMIN D3 [Concomitant]
     Active Substance: CHOLECALCIFEROL
     Indication: THYROID DISORDER
  26. PRILOSEC [Suspect]
     Active Substance: OMEPRAZOLE MAGNESIUM
     Indication: GASTROOESOPHAGEAL REFLUX DISEASE
     Route: 048
     Dates: start: 1994, end: 1998
  27. LOSARTAN. [Concomitant]
     Active Substance: LOSARTAN
     Indication: HYPERTENSION
     Dates: start: 2005, end: 201811
  28. FAMOTIDINE. [Concomitant]
     Active Substance: FAMOTIDINE
     Dosage: TOOK 3 MONTH
     Dates: start: 20181129
  29. GLIMEPIRIDE. [Concomitant]
     Active Substance: GLIMEPIRIDE
     Indication: DIABETES MELLITUS
     Dosage: 1/2 PILL
     Dates: start: 2015

REACTIONS (4)
  - Renal injury [Unknown]
  - Renal failure [Unknown]
  - Chronic kidney disease [Not Recovered/Not Resolved]
  - Rebound acid hypersecretion [Unknown]

NARRATIVE: CASE EVENT DATE: 20160331
